FAERS Safety Report 20477824 (Version 1)
Quarter: 2022Q1

REPORT INFORMATION
  Report Type: Report from Study
  Country: US (occurrence: None)
  Receive Date: 20220216
  Receipt Date: 20220216
  Transmission Date: 20220423
  Serious: Yes (Hospitalization)
  Sender: FDA-Public Use
  Company Number: US-ROCHE-3022458

PATIENT
  Age: 76 Year
  Sex: Male
  Weight: 88.7 kg

DRUGS (4)
  1. RITUXIMAB [Suspect]
     Active Substance: RITUXIMAB
     Indication: Hairy cell leukaemia
     Dosage: 10 MG/ML
     Route: 041
     Dates: start: 20190418
  2. RITUXIMAB [Suspect]
     Active Substance: RITUXIMAB
     Route: 041
     Dates: start: 20190321
  3. RITUXIMAB [Suspect]
     Active Substance: RITUXIMAB
     Route: 041
     Dates: start: 20190404
  4. PENTOSTATIN [Suspect]
     Active Substance: PENTOSTATIN
     Indication: Hairy cell leukaemia
     Dosage: TOTAL OF 12 DOSES
     Route: 065
     Dates: start: 20190321

REACTIONS (1)
  - Hypersensitivity [Recovered/Resolved]

NARRATIVE: CASE EVENT DATE: 20190418
